FAERS Safety Report 4535167-8 (Version None)
Quarter: 2004Q4

REPORT INFORMATION
  Report Type: 
  Country: None (occurrence: None)
  Receive Date: 20041222
  Receipt Date: 20040402
  Transmission Date: 20050328
  Serious: No
  Sender: FDA-Public Use
  Company Number: US-BRISTOL-MYERS SQUIBB COMPANY-12550463

PATIENT
  Age: 72 Year
  Sex: Female
  Weight: 82 kg

DRUGS (6)
  1. DOVONEX [Suspect]
     Indication: PSORIASIS
     Dosage: DOSE = APPLY ONCE DAILY FOR 5 DAYS A WEEK
     Route: 061
     Dates: start: 20030818
  2. LIPITOR [Concomitant]
  3. LEVOXYL [Concomitant]
  4. MULTI-VITAMIN [Concomitant]
  5. TRIAMTERENE [Concomitant]
  6. ASPIRIN [Concomitant]

REACTIONS (5)
  - BURNING SENSATION [None]
  - DRY SKIN [None]
  - ERYTHEMA [None]
  - OEDEMA PERIPHERAL [None]
  - PRURITUS [None]
